FAERS Safety Report 11223118 (Version 4)
Quarter: 2016Q2

REPORT INFORMATION
  Report Type: Spontaneous
  Country: CN (occurrence: CN)
  Receive Date: 20150626
  Receipt Date: 20160616
  Transmission Date: 20160815
  Serious: Yes (Hospitalization, Other)
  Sender: FDA-Public Use
  Company Number: CN-ASTRAZENECA-2015SE61380

PATIENT
  Age: 82 Year
  Sex: Female

DRUGS (11)
  1. TWO UNSPECIFIED DRUGS [Concomitant]
  2. GINKGO LEAF [Concomitant]
  3. OMEPRAZOLE. [Suspect]
     Active Substance: OMEPRAZOLE
     Dosage: TWO PILLS ONCE
     Route: 048
     Dates: start: 20150618, end: 20150619
  4. INTRAVENOUS DRIP OF INJECTION [Concomitant]
     Indication: ABDOMINAL DISCOMFORT
  5. PLENDIL [Concomitant]
     Active Substance: FELODIPINE
  6. NEXIUM [Suspect]
     Active Substance: ESOMEPRAZOLE MAGNESIUM
     Indication: GASTROOESOPHAGEAL REFLUX DISEASE
     Route: 048
  7. NEXIUM [Suspect]
     Active Substance: ESOMEPRAZOLE MAGNESIUM
     Indication: GASTROOESOPHAGEAL REFLUX DISEASE
     Route: 048
  8. NEXIUM [Suspect]
     Active Substance: ESOMEPRAZOLE MAGNESIUM
     Indication: GASTROOESOPHAGEAL REFLUX DISEASE
     Route: 048
  9. NEXIUM [Suspect]
     Active Substance: ESOMEPRAZOLE MAGNESIUM
     Indication: GASTROOESOPHAGEAL REFLUX DISEASE
     Route: 048
     Dates: end: 20150117
  10. NEXIUM [Suspect]
     Active Substance: ESOMEPRAZOLE MAGNESIUM
     Indication: GASTROOESOPHAGEAL REFLUX DISEASE
     Dosage: 20.0MG UNKNOWN
     Route: 048
  11. BIFIDOBACTERIUM QUADRUPLE LIVING BACTERIUM [Concomitant]

REACTIONS (11)
  - Gastrooesophageal reflux disease [Unknown]
  - Chronic gastritis [Unknown]
  - Discomfort [Unknown]
  - Colitis [Unknown]
  - Diarrhoea [Unknown]
  - Abdominal discomfort [Not Recovered/Not Resolved]
  - Drug ineffective [Unknown]
  - Abdominal distension [Recovering/Resolving]
  - Insomnia [Unknown]
  - Intentional product misuse [Unknown]
  - Oesophageal haemorrhage [Recovered/Resolved]

NARRATIVE: CASE EVENT DATE: 201405
